FAERS Safety Report 22389370 (Version 1)
Quarter: 2023Q2

REPORT INFORMATION
  Report Type: Spontaneous
  Country: US (occurrence: None)
  Receive Date: 20230530
  Receipt Date: 20230530
  Transmission Date: 20230721
  Serious: Yes (Death)
  Sender: FDA-Public Use
  Company Number: None

PATIENT
  Age: 75 Year
  Sex: Male

DRUGS (15)
  1. REPATHA [Suspect]
     Active Substance: EVOLOCUMAB
     Indication: Hypercholesterolaemia
     Dosage: FREQUENCY : EVERY OTHER WEEK;?
     Route: 058
     Dates: start: 20220711
  2. DOXYCYCLINE HYCLATE [Concomitant]
     Active Substance: DOXYCYCLINE HYCLATE
  3. ALBUTEROL [Concomitant]
     Active Substance: ALBUTEROL
  4. LYRICA [Concomitant]
     Active Substance: PREGABALIN
  5. LORATADINE [Concomitant]
     Active Substance: LORATADINE
  6. MONTELUKAST [Concomitant]
     Active Substance: MONTELUKAST SODIUM
  7. CARBIDOPA\LEVODOPA [Concomitant]
     Active Substance: CARBIDOPA\LEVODOPA
  8. ESCITALOPRAM [Concomitant]
  9. XARELTO [Concomitant]
     Active Substance: RIVAROXABAN
  10. ATORVASTATIN [Concomitant]
     Active Substance: ATORVASTATIN
  11. BUSPIRONE [Concomitant]
     Active Substance: BUSPIRONE HYDROCHLORIDE
  12. NITROGLYCERIN [Concomitant]
     Active Substance: NITROGLYCERIN
  13. TIZANIDINE [Concomitant]
     Active Substance: TIZANIDINE
  14. PREDNISONE [Concomitant]
     Active Substance: PREDNISONE
  15. TRELEGY ELLIPTA [Concomitant]
     Active Substance: FLUTICASONE FUROATE\UMECLIDINIUM BROMIDE\VILANTEROL TRIFENATATE

REACTIONS (1)
  - Death [None]

NARRATIVE: CASE EVENT DATE: 20230301
